FAERS Safety Report 4551815-0 (Version None)
Quarter: 2005Q1

REPORT INFORMATION
  Report Type: 
  Country: None (occurrence: None)
  Receive Date: 20050111
  Receipt Date: 20041227
  Transmission Date: 20050727
  Serious: Yes (Hospitalization)
  Sender: FDA-Public Use
  Company Number: S04-ITA-08108-01

PATIENT
  Age: 80 Year
  Sex: Male

DRUGS (11)
  1. CIPRALEX (ESCITALOPRAM) [Suspect]
     Indication: MAJOR DEPRESSION
     Dosage: 10 MG QD PO
     Route: 048
     Dates: start: 20041118, end: 20041128
  2. CIPRALEX (ESCITALOPRAM) [Suspect]
     Indication: NEUROSIS
     Dosage: 10 MG QD PO
     Route: 048
     Dates: start: 20041118, end: 20041128
  3. GABAPENTIN [Concomitant]
  4. DELTACORTENE (PREDNISONE) [Concomitant]
  5. LIORESAL ^CIBA-GEIGY^ (BALCLOFEN) [Concomitant]
  6. ENAPREN (ENALAPRIL MALEATE) [Concomitant]
  7. MODURETIC ^DU PONT^ [Concomitant]
  8. LANSOX (LANSOPRAZOLE) [Concomitant]
  9. PRADIF (TAMSULOSIN HYDOCHLORIDE) [Concomitant]
  10. ACETYLSALICYLIC ACID SRT [Concomitant]
  11. TOPICAL BRONCODILATATORS FOR INHALATION [Concomitant]

REACTIONS (2)
  - ABDOMINAL PAIN UPPER [None]
  - HYPONATRAEMIA [None]
